FAERS Safety Report 16424594 (Version 1)
Quarter: 2019Q2

REPORT INFORMATION
  Report Type: Spontaneous
  Country: HR (occurrence: HR)
  Receive Date: 20190613
  Receipt Date: 20190613
  Transmission Date: 20190711
  Serious: Yes (Other)
  Sender: FDA-Public Use
  Company Number: HR-ACCORD-132754

PATIENT
  Sex: Female

DRUGS (5)
  1. NORMABEL [Concomitant]
     Active Substance: DIAZEPAM
     Route: 048
  2. ALCOHOL. [Concomitant]
     Active Substance: ALCOHOL
     Route: 048
     Dates: start: 20181216, end: 20181216
  3. DEPAKINE CHRONO [Concomitant]
     Active Substance: VALPROATE SODIUM
     Route: 048
  4. VELAFAX [Concomitant]
     Active Substance: VENLAFAXINE HYDROCHLORIDE
     Route: 048
  5. CLOZAPINE. [Suspect]
     Active Substance: CLOZAPINE
     Dosage: LAST ADMINISTRATION: 16-DEC-2018
     Route: 048
     Dates: start: 20181216

REACTIONS (2)
  - Mydriasis [Unknown]
  - Intentional overdose [Unknown]

NARRATIVE: CASE EVENT DATE: 20181216
